FAERS Safety Report 8381571-X (Version None)
Quarter: 2012Q2

REPORT INFORMATION
  Report Type: 
  Country: None (occurrence: None)
  Receive Date: 20120523
  Receipt Date: 20120511
  Transmission Date: 20120825
  Serious: Yes (Other)
  Sender: FDA-Public Use
  Company Number: US-MYLANLABS-2012S1009890

PATIENT
  Age: 82 Year
  Sex: Female

DRUGS (1)
  1. PANTOPRAZOLE [Suspect]
     Indication: GASTRIC ULCER
     Route: 065

REACTIONS (2)
  - NEUTROPENIA [None]
  - LEUKOPENIA [None]
